FAERS Safety Report 19551911 (Version 2)
Quarter: 2021Q3

REPORT INFORMATION
  Report Type: Spontaneous
  Country: US (occurrence: US)
  Receive Date: 20210715
  Receipt Date: 20210906
  Transmission Date: 20211014
  Serious: Yes (Other)
  Sender: FDA-Public Use
  Company Number: US-CELLTRION INC.-2021US005571

PATIENT

DRUGS (5)
  1. PFIZER?BIONTECH COVID?19 VACCINE [Suspect]
     Active Substance: TOZINAMERAN
     Indication: COVID-19 IMMUNISATION
     Dosage: SINGLE DOSE (1ST) ? LEFT ARM
     Route: 030
     Dates: start: 20210402, end: 20210402
  2. PFIZER?BIONTECH COVID?19 VACCINE [Suspect]
     Active Substance: TOZINAMERAN
     Dosage: SINGLE DOSE (2ND) ? LEFT ARM
     Route: 030
     Dates: start: 20210423, end: 20210423
  3. MERCAPTOPURINE. [Concomitant]
     Active Substance: MERCAPTOPURINE
     Indication: CROHN^S DISEASE
     Dosage: 50 MG, DAILY
     Route: 048
  4. OMEPRAZOLE. [Concomitant]
     Active Substance: OMEPRAZOLE
     Indication: CROHN^S DISEASE
     Dosage: 40 MG, DAILY
     Route: 048
  5. INFLECTRA [Suspect]
     Active Substance: INFLIXIMAB-DYYB
     Indication: CROHN^S DISEASE
     Dosage: 100 MG, CYCLIC (EIGHT WEEKS APART)
     Route: 048
     Dates: start: 20210405

REACTIONS (6)
  - Underdose [Unknown]
  - Swelling [Recovering/Resolving]
  - Faecal calprotectin decreased [Unknown]
  - Faecal calprotectin increased [Unknown]
  - Incorrect route of product administration [Unknown]
  - Paraesthesia [Not Recovered/Not Resolved]

NARRATIVE: CASE EVENT DATE: 20210402
